FAERS Safety Report 6155639-2 (Version None)
Quarter: 2009Q2

REPORT INFORMATION
  Report Type: 
  Country: None (occurrence: None)
  Receive Date: 20090415
  Receipt Date: 20090409
  Transmission Date: 20091009
  Serious: Yes (Other)
  Sender: FDA-Public Use
  Company Number: US-JNJCH-2009010056

PATIENT
  Sex: Female

DRUGS (1)
  1. BENADRYL ALLERGY QUICK DISSOLVE STRIPS [Suspect]
     Indication: HYPERSENSITIVITY
     Dosage: TEXT:1 STRIP ONCE
     Route: 048
     Dates: start: 20090409, end: 20090409

REACTIONS (3)
  - PALATAL OEDEMA [None]
  - PARAESTHESIA [None]
  - PHARYNGEAL HYPOAESTHESIA [None]
